FAERS Safety Report 9825869 (Version 2)
Quarter: 2013Q4

REPORT INFORMATION
  Report Type: Spontaneous
  Country: US (occurrence: None)
  Receive Date: 20131223
  Receipt Date: 20131223
  Transmission Date: 20140711
  Serious: Yes (Other)
  Sender: FDA-Public Use
  Company Number: 217888LEO

PATIENT
  Age: 61 Year
  Sex: Male
  Weight: 111.3 kg

DRUGS (2)
  1. PICATO [Suspect]
     Indication: ACTINIC KERATOSIS
     Dosage: 1 IN 1 D, ON SCALP
     Dates: start: 20120530, end: 20120531
  2. LISINOPRIL [Concomitant]

REACTIONS (5)
  - Application site burn [None]
  - Application site pain [None]
  - Skin tightness [None]
  - Disease recurrence [None]
  - Incorrect drug administration duration [None]
